FAERS Safety Report 14297829 (Version 2)
Quarter: 2018Q3

REPORT INFORMATION
  Report Type: Spontaneous
  Country: US (occurrence: US)
  Receive Date: 20171218
  Receipt Date: 20180716
  Transmission Date: 20181010
  Serious: Yes (Hospitalization, Other)
  Sender: FDA-Public Use
  Company Number: US-DSJP-DSU-2017-149936

PATIENT

DRUGS (1)
  1. BENICAR [Suspect]
     Active Substance: OLMESARTAN MEDOXOMIL
     Indication: PRODUCT USED FOR UNKNOWN INDICATION
     Dosage: 20 MG, QD
     Route: 048
     Dates: start: 20100122

REACTIONS (11)
  - Hypovolaemia [Unknown]
  - Gastrooesophageal reflux disease [Unknown]
  - Pancreatitis chronic [Recovering/Resolving]
  - Weight decreased [Unknown]
  - Haemorrhoids [Unknown]
  - Acute kidney injury [Unknown]
  - Diverticulum intestinal [Recovering/Resolving]
  - Large intestine polyp [Unknown]
  - Ileus paralytic [Unknown]
  - Gastritis erosive [Unknown]
  - Hiatus hernia [Unknown]

NARRATIVE: CASE EVENT DATE: 20110723
